FAERS Safety Report 4852541-0 (Version None)
Quarter: 2005Q4

REPORT INFORMATION
  Report Type: 
  Country: None (occurrence: None)
  Receive Date: 20051213
  Receipt Date: 20051201
  Transmission Date: 20060501
  Serious: Yes (Other)
  Sender: FDA-Public Use
  Company Number: PHHO2005MX19000

PATIENT
  Age: 67 Year
  Sex: Female

DRUGS (1)
  1. TEGRETOL [Suspect]
     Indication: EPILEPSY
     Dosage: 3 TABLETS DAILY
     Route: 048
     Dates: start: 20051117, end: 20051123

REACTIONS (4)
  - APHASIA [None]
  - HEPATITIS [None]
  - OCULAR ICTERUS [None]
  - TREMOR [None]
